FAERS Safety Report 6660333-5 (Version None)
Quarter: 2010Q1

REPORT INFORMATION
  Report Type: 
  Country: None (occurrence: None)
  Receive Date: 20100331
  Receipt Date: 20100323
  Transmission Date: 20100710
  Serious: Yes (Other)
  Sender: FDA-Public Use
  Company Number: US-RANBAXY-2010US-32706

PATIENT

DRUGS (1)
  1. ISOPTIN SR [Suspect]
     Indication: DRUG USE FOR UNKNOWN INDICATION
     Dosage: 120 MG, 15 TABLETS (TOTAL: 1,800 MG)
     Route: 065

REACTIONS (2)
  - NON-CARDIOGENIC PULMONARY OEDEMA [None]
  - OVERDOSE [None]
